FAERS Safety Report 19183470 (Version 1)
Quarter: 2021Q2

REPORT INFORMATION
  Report Type: Spontaneous
  Country: CA (occurrence: CA)
  Receive Date: 20210427
  Receipt Date: 20210427
  Transmission Date: 20210717
  Serious: Yes (Other)
  Sender: FDA-Public Use
  Company Number: CA-TEVA-2021-CA-1903649

PATIENT
  Sex: Female

DRUGS (3)
  1. FULVESTRANT. [Concomitant]
     Active Substance: FULVESTRANT
     Route: 030
  2. LETROZOLE. [Suspect]
     Active Substance: LETROZOLE
     Indication: PRODUCT USED FOR UNKNOWN INDICATION
     Route: 065
  3. TAMOXIFEN [Suspect]
     Active Substance: TAMOXIFEN
     Indication: PRODUCT USED FOR UNKNOWN INDICATION
     Route: 048

REACTIONS (2)
  - Disease progression [Unknown]
  - Adverse drug reaction [Unknown]
